FAERS Safety Report 24811223 (Version 1)
Quarter: 2025Q1

REPORT INFORMATION
  Report Type: Spontaneous
  Country: US (occurrence: None)
  Receive Date: 20250106
  Receipt Date: 20250106
  Transmission Date: 20250409
  Serious: Yes (Life-Threatening)
  Sender: FDA-CTU
  Company Number: None

PATIENT
  Age: 73 Year
  Sex: Male
  Weight: 59.85 kg

DRUGS (9)
  1. REPATHA [Suspect]
     Active Substance: EVOLOCUMAB
     Route: 058
     Dates: start: 20240104, end: 20240104
  2. Lefludemife [Concomitant]
  3. METHYLPREDNISOLONE [Concomitant]
     Active Substance: METHYLPREDNISOLONE
  4. ASPIRIN [Concomitant]
     Active Substance: ASPIRIN
  5. CELEBREX [Concomitant]
     Active Substance: CELECOXIB
  6. SERTRALINE [Concomitant]
     Active Substance: SERTRALINE HYDROCHLORIDE
  7. TADALAFIL [Concomitant]
     Active Substance: TADALAFIL
  8. TRAMADOL [Concomitant]
     Active Substance: TRAMADOL
  9. MAGNESIUM [Concomitant]
     Active Substance: MAGNESIUM

REACTIONS (3)
  - Upper respiratory tract infection [None]
  - Pulmonary congestion [None]
  - Productive cough [None]

NARRATIVE: CASE EVENT DATE: 20241201
